FAERS Safety Report 24276724 (Version 5)
Quarter: 2025Q3

REPORT INFORMATION
  Report Type: Spontaneous
  Country: IL (occurrence: IL)
  Receive Date: 20240903
  Receipt Date: 20250803
  Transmission Date: 20251020
  Serious: Yes (Hospitalization, Other)
  Sender: ALEXION PHARMACEUTICALS
  Company Number: IL-ALXN-202408ISR002032IL

PATIENT
  Age: 5 Year
  Sex: Male

DRUGS (1)
  1. KANUMA [Suspect]
     Active Substance: SEBELIPASE ALFA
     Indication: Lysosomal acid lipase deficiency
     Route: 065

REACTIONS (6)
  - Device related sepsis [Not Recovered/Not Resolved]
  - Pericardial effusion [Unknown]
  - Pleural effusion [Unknown]
  - Ascites [Unknown]
  - Anaemia [Unknown]
  - Inability to afford medication [Unknown]

NARRATIVE: CASE EVENT DATE: 20240801
